FAERS Safety Report 6729615-2 (Version None)
Quarter: 2010Q2

REPORT INFORMATION
  Report Type: 
  Country: None (occurrence: None)
  Receive Date: 20100518
  Receipt Date: 20100513
  Transmission Date: 20101027
  Serious: Yes (Other)
  Sender: FDA-Public Use
  Company Number: US-ASTRAZENECA-2008UW27412

PATIENT
  Sex: Male
  Weight: 99.8 kg

DRUGS (4)
  1. SEROQUEL [Suspect]
     Indication: INSOMNIA
     Route: 048
     Dates: start: 20030626
  2. SEROQUEL [Suspect]
     Dosage: 25- 200 MG
     Route: 048
     Dates: start: 20050101, end: 20060101
  3. XANAX [Concomitant]
     Dosage: FOUR TIMES A DAY
     Dates: start: 20030626
  4. HYDROCHLOROTHIAZIDE [Concomitant]
     Dates: start: 20030626

REACTIONS (2)
  - ADVERSE DRUG REACTION [None]
  - TYPE 2 DIABETES MELLITUS [None]
